FAERS Safety Report 5099748-8 (Version None)
Quarter: 2006Q3

REPORT INFORMATION
  Report Type: 
  Country: None (occurrence: None)
  Receive Date: 20060908
  Receipt Date: 20060828
  Transmission Date: 20061208
  Serious: Yes (Death, Other)
  Sender: FDA-Public Use
  Company Number: US-NOVOPROD-256629

PATIENT
  Age: 75 Year
  Sex: Female

DRUGS (4)
  1. NOVOSEVEN [Suspect]
     Indication: PROPHYLAXIS
  2. RITUXIMAB [Concomitant]
     Dosage: 375 MG/M2 X 3
  3. CYCLOPHOSPHAMIDE [Concomitant]
  4. PREDNISON [Concomitant]

REACTIONS (4)
  - CONTUSION [None]
  - DEEP VEIN THROMBOSIS [None]
  - HAEMATOMA [None]
  - SEPSIS [None]
